FAERS Safety Report 9251220 (Version 6)
Quarter: 2014Q1

REPORT INFORMATION
  Report Type: Spontaneous
  Country: US (occurrence: US)
  Receive Date: 20130424
  Receipt Date: 20140131
  Transmission Date: 20141002
  Serious: Yes (Disabling, Other)
  Sender: FDA-Public Use
  Company Number: US-ASTRAZENECA-2013SE27447

PATIENT
  Age: 56 Year
  Sex: Female

DRUGS (16)
  1. NEXIUM [Suspect]
     Indication: GASTROOESOPHAGEAL REFLUX DISEASE
     Route: 048
     Dates: start: 20040411, end: 2012
  2. NEXIUM [Suspect]
     Indication: GASTROOESOPHAGEAL REFLUX DISEASE
     Route: 048
     Dates: start: 200501
  3. NEXIUM [Suspect]
     Indication: GASTROOESOPHAGEAL REFLUX DISEASE
     Route: 048
     Dates: start: 2007, end: 2013
  4. NEXIUM [Suspect]
     Indication: GASTROOESOPHAGEAL REFLUX DISEASE
     Route: 048
     Dates: start: 20090625
  5. NEXIUM [Suspect]
     Indication: GASTROOESOPHAGEAL REFLUX DISEASE
     Dosage: 40 MG AM AC
     Route: 048
     Dates: start: 20100716
  6. PROTONIX [Concomitant]
     Dates: start: 2013
  7. MYLANTA [Concomitant]
     Dosage: 2 TEASPOONS 3 TIMES A DAY
     Dates: start: 2011
  8. TORADOL [Concomitant]
     Dates: start: 2011
  9. PRILOSEC OTC [Concomitant]
     Dates: start: 2011
  10. CARAFATE [Concomitant]
  11. LIBRAX [Concomitant]
  12. ASPIRIN [Concomitant]
  13. VALTREX [Concomitant]
  14. MULTIVITAMINS [Concomitant]
  15. NORVASC [Concomitant]
  16. REGLAN [Concomitant]

REACTIONS (11)
  - Rheumatoid arthritis [Unknown]
  - Back pain [Unknown]
  - Exostosis [Unknown]
  - Renal cell carcinoma [Unknown]
  - Osteoporosis [Unknown]
  - Bone density decreased [Unknown]
  - Bone disorder [Unknown]
  - Multiple fractures [Unknown]
  - Arthritis [Unknown]
  - Vitamin D deficiency [Unknown]
  - Osteoarthritis [Unknown]
